FAERS Safety Report 5802488-8 (Version None)
Quarter: 2008Q2

REPORT INFORMATION
  Report Type: 
  Country: None (occurrence: None)
  Receive Date: 20080630
  Receipt Date: 20070831
  Transmission Date: 20081010
  Serious: Yes (Other)
  Sender: FDA-Public Use
  Company Number: 161060USA

PATIENT
  Sex: Female

DRUGS (1)
  1. KETOROLAC TROMETHAMINE [Suspect]
     Indication: NEPHROLITHIASIS
     Dosage: 20 MG (20 MG IN 1 D), ORAL
     Route: 048
     Dates: start: 20070723, end: 20070726

REACTIONS (2)
  - ABDOMINAL DISCOMFORT [None]
  - GASTRIC ULCER [None]
